FAERS Safety Report 23798617 (Version 2)
Quarter: 2024Q2

REPORT INFORMATION
  Report Type: Report from Study
  Country: EG (occurrence: EG)
  Receive Date: 20240430
  Receipt Date: 20240502
  Transmission Date: 20240717
  Serious: Yes (Other)
  Sender: FDA-Public Use
  Company Number: GB-UCBSA-2024020148

PATIENT

DRUGS (7)
  1. LEVETIRACETAM [Suspect]
     Active Substance: LEVETIRACETAM
     Indication: Epileptic encephalopathy
     Dosage: UNK
  2. LEVETIRACETAM [Suspect]
     Active Substance: LEVETIRACETAM
     Indication: Seizure
  3. LEVETIRACETAM [Suspect]
     Active Substance: LEVETIRACETAM
     Indication: Off label use
  4. VALPROATE [Concomitant]
     Active Substance: VALPROIC ACID
     Indication: Epileptic encephalopathy
     Dosage: UNK
  5. VALPROATE [Concomitant]
     Active Substance: VALPROIC ACID
     Indication: Seizure
  6. ZONISAMIDE [Concomitant]
     Active Substance: ZONISAMIDE
     Indication: Epileptic encephalopathy
     Dosage: UNK
  7. ZONISAMIDE [Concomitant]
     Active Substance: ZONISAMIDE
     Indication: Seizure

REACTIONS (2)
  - Seizure [Unknown]
  - Off label use [Unknown]
